FAERS Safety Report 7733530-5 (Version None)
Quarter: 2011Q3

REPORT INFORMATION
  Report Type: 
  Country: None (occurrence: None)
  Receive Date: 20110907
  Receipt Date: 20110907
  Transmission Date: 20111222
  Serious: Yes (Hospitalization)
  Sender: FDA-Public Use
  Company Number: None

PATIENT
  Sex: Female

DRUGS (1)
  1. CLINIQUE ACNE SOLUTION (OTC) [Suspect]
     Indication: ACNE
     Route: 061
     Dates: start: 20110819, end: 20110820

REACTIONS (3)
  - RASH ERYTHEMATOUS [None]
  - SKIN IRRITATION [None]
  - EYE IRRITATION [None]
